FAERS Safety Report 13642853 (Version 2)
Quarter: 2017Q2

REPORT INFORMATION
  Report Type: Spontaneous
  Country: GB (occurrence: GB)
  Receive Date: 20170612
  Receipt Date: 20170614
  Transmission Date: 20170830
  Serious: Yes (Hospitalization)
  Sender: FDA-Public Use
  Company Number: GB-ASPEN PHARMA TRADING LIMITED US-AG-2017-003918

PATIENT
  Sex: Female

DRUGS (2)
  1. GAZYVARO [Concomitant]
     Active Substance: OBINUTUZUMAB
     Indication: PLATELET COUNT DECREASED
     Route: 042
     Dates: start: 20161128, end: 20161128
  2. CHLORAMBUCIL [Suspect]
     Active Substance: CHLORAMBUCIL
     Indication: CHEMOTHERAPY
     Dosage: CYCLE 3
     Route: 065
     Dates: start: 20161128, end: 20161128

REACTIONS (3)
  - Circumstance or information capable of leading to medication error [Unknown]
  - Adverse event [Unknown]
  - Cytopenia [Unknown]
